FAERS Safety Report 18798673 (Version 1)
Quarter: 2021Q1

REPORT INFORMATION
  Report Type: Other
  Country: US (occurrence: US)
  Receive Date: 20210128
  Receipt Date: 20210128
  Transmission Date: 20210419
  Serious: Yes (Hospitalization, Other)
  Sender: FDA-Public Use
  Company Number: US-EYWA PHARMA INC.-2105951

PATIENT
  Age: 71 Year
  Sex: Female

DRUGS (3)
  1. BACLOFEN. [Suspect]
     Active Substance: BACLOFEN
     Indication: BACK PAIN
     Route: 065
  2. CEFTOLOZANE [Concomitant]
     Active Substance: CEFTOLOZANE
     Route: 065
  3. TAZOBACTAM [Concomitant]
     Active Substance: TAZOBACTAM
     Route: 065

REACTIONS (3)
  - Mental status changes [Recovered/Resolved]
  - Posterior reversible encephalopathy syndrome [Recovered/Resolved]
  - Neurotoxicity [Recovered/Resolved]
